FAERS Safety Report 25203029 (Version 1)
Quarter: 2025Q2

REPORT INFORMATION
  Report Type: Spontaneous
  Country: CN (occurrence: CN)
  Receive Date: 20250416
  Receipt Date: 20250416
  Transmission Date: 20250716
  Serious: Yes (Other)
  Sender: RANBAXY
  Company Number: CN-SUN PHARMACEUTICAL INDUSTRIES LTD-2025R1-502998

PATIENT
  Age: 32 Year
  Sex: Female

DRUGS (5)
  1. ESOMEPRAZOLE [Suspect]
     Active Substance: ESOMEPRAZOLE
     Indication: Pancreatic enzyme abnormality
     Route: 065
  2. EZETIMIBE [Suspect]
     Active Substance: EZETIMIBE
     Indication: Lipids
     Route: 065
  3. FENOFIBRATE [Suspect]
     Active Substance: FENOFIBRATE
     Indication: Lipids
     Route: 065
  4. OCTREOTIDE [Suspect]
     Active Substance: OCTREOTIDE
     Indication: Pancreatic enzyme abnormality
     Route: 065
  5. ULINASTATIN [Suspect]
     Active Substance: ULINASTATIN
     Indication: Pancreatic enzyme abnormality
     Route: 065

REACTIONS (4)
  - Exposure during pregnancy [Unknown]
  - Premature rupture of membranes [Unknown]
  - Treatment noncompliance [Unknown]
  - Premature delivery [Unknown]
